FAERS Safety Report 6544858-9 (Version None)
Quarter: 2010Q1

REPORT INFORMATION
  Report Type: 
  Country: None (occurrence: None)
  Receive Date: 20100121
  Receipt Date: 20100113
  Transmission Date: 20100710
  Serious: Yes (Other)
  Sender: FDA-Public Use
  Company Number: IN-PFIZER INC-2010005146

PATIENT
  Age: 42 Year
  Sex: Male

DRUGS (2)
  1. MAGNEX [Suspect]
     Indication: HEAD INJURY
     Dosage: 2 G, 3X/DAY
     Route: 042
     Dates: start: 20100104, end: 20100109
  2. PHENYTOIN [Concomitant]
     Indication: EPILEPSY
     Dosage: UNK

REACTIONS (1)
  - PANCYTOPENIA [None]
